FAERS Safety Report 8445574-9 (Version None)
Quarter: 2012Q2

REPORT INFORMATION
  Report Type: 
  Country: None (occurrence: None)
  Receive Date: 20120618
  Receipt Date: 20120611
  Transmission Date: 20120825
  Serious: Yes (Hospitalization)
  Sender: FDA-Public Use
  Company Number: FR-JNJFOC-20120511193

PATIENT
  Age: 45 Year
  Sex: Female

DRUGS (2)
  1. DURAGESIC-100 [Suspect]
     Indication: SCIATICA
     Dosage: 2 DOSES PER DAY
     Route: 062
  2. TRAMADOL HCL [Suspect]
     Indication: SCIATICA
     Route: 048

REACTIONS (6)
  - VOMITING [None]
  - CONFUSIONAL STATE [None]
  - EXPIRED DRUG ADMINISTERED [None]
  - VERTIGO [None]
  - HEADACHE [None]
  - HYPERHIDROSIS [None]
